FAERS Safety Report 9387303 (Version 2)
Quarter: 2013Q3

REPORT INFORMATION
  Report Type: Spontaneous
  Country: DE (occurrence: DE)
  Receive Date: 20130708
  Receipt Date: 20130719
  Transmission Date: 20140515
  Serious: Yes (Other)
  Sender: FDA-Public Use
  Company Number: DE-JNJFOC-20130504612

PATIENT
  Age: 45 Year
  Sex: Female

DRUGS (1)
  1. XEPLION [Suspect]
     Indication: PSYCHOTIC DISORDER
     Route: 030
     Dates: start: 20130125, end: 20130219

REACTIONS (6)
  - Akathisia [Recovering/Resolving]
  - Muscular weakness [Recovering/Resolving]
  - Decreased activity [Recovering/Resolving]
  - Muscle rigidity [Recovering/Resolving]
  - Parkinsonian gait [Recovering/Resolving]
  - Parkinsonism [Recovering/Resolving]
